FAERS Safety Report 6099547-4 (Version None)
Quarter: 2009Q1

REPORT INFORMATION
  Report Type: 
  Country: None (occurrence: None)
  Receive Date: 20090226
  Receipt Date: 20090211
  Transmission Date: 20090719
  Serious: Yes (Hospitalization)
  Sender: FDA-Public Use
  Company Number: 2009S1002497

PATIENT
  Age: 30 Year
  Sex: Female

DRUGS (5)
  1. CLOTRIMAZOLE [Suspect]
     Indication: CANDIDIASIS
     Dosage: 200 MG;DAILY;VAGINAL
     Route: 067
  2. DOXYCYCLINE HYCLATE [Suspect]
     Indication: PELVIC INFLAMMATORY DISEASE
     Dosage: 100 MG; TWICE A DAY; ORAL
     Route: 048
  3. IBUPROFEN [Suspect]
     Indication: PLANTAR FASCIITIS
     Dosage: DAILY; TOPICAL
     Route: 061
  4. SPORANOX [Suspect]
     Indication: VULVOVAGINAL CANDIDIASIS
     Dosage: 100 MG; 2_12_HOUR; ORAL; 200 MG;TWICE A DAY;
     Route: 048
     Dates: start: 20080131
  5. SPORANOX [Suspect]
     Indication: VULVOVAGINAL CANDIDIASIS
     Dosage: 100 MG; 2_12_HOUR; ORAL; 200 MG;TWICE A DAY;
     Route: 048
     Dates: start: 20090204

REACTIONS (8)
  - ARTHRALGIA [None]
  - CAESAREAN SECTION [None]
  - CONDITION AGGRAVATED [None]
  - DRUG EXPOSURE DURING PREGNANCY [None]
  - PELVIC PAIN [None]
  - PLANTAR FASCIITIS [None]
  - PUBIC PAIN [None]
  - VULVOVAGINAL CANDIDIASIS [None]
